FAERS Safety Report 21291068 (Version 1)
Quarter: 2022Q3

REPORT INFORMATION
  Report Type: Spontaneous
  Country: US (occurrence: US)
  Receive Date: 20220903
  Receipt Date: 20220903
  Transmission Date: 20221026
  Serious: Yes (Other)
  Sender: FDA-Public Use
  Company Number: US-SA-SAC20220901000759

PATIENT
  Sex: Male

DRUGS (2)
  1. ZANTAC [Suspect]
     Active Substance: RANITIDINE HYDROCHLORIDE
     Dosage: UNK, OVER THE COUNTER
     Route: 048
     Dates: start: 1996, end: 2012
  2. RANITIDINE HYDROCHLORIDE [Suspect]
     Active Substance: RANITIDINE HYDROCHLORIDE
     Dosage: UNK, OVER THE COUNTER
     Route: 048
     Dates: start: 2000, end: 2012

REACTIONS (2)
  - Prostate cancer [Unknown]
  - Urethral cancer [Unknown]
